FAERS Safety Report 19470092 (Version 1)
Quarter: 2021Q2

REPORT INFORMATION
  Report Type: Spontaneous
  Country: PK (occurrence: PK)
  Receive Date: 20210629
  Receipt Date: 20210629
  Transmission Date: 20210717
  Serious: Yes (Other)
  Sender: FDA-Public Use
  Company Number: PK-NOVOPROD-823199

PATIENT
  Age: 68 Year
  Sex: Female

DRUGS (2)
  1. NOVORAPID [Suspect]
     Active Substance: INSULIN ASPART
     Indication: PRODUCT USED FOR UNKNOWN INDICATION
     Dosage: 40 IU, QD
     Route: 065
  2. RYZODEG 70/30 [Suspect]
     Active Substance: INSULIN ASPART\INSULIN DEGLUDEC
     Indication: PRODUCT USED FOR UNKNOWN INDICATION
     Dosage: 48 IU, QD
     Route: 065

REACTIONS (1)
  - Scleroderma [Recovered/Resolved]
